FAERS Safety Report 4864065-5 (Version None)
Quarter: 2005Q4

REPORT INFORMATION
  Report Type: 
  Country: None (occurrence: None)
  Receive Date: 20051219
  Receipt Date: 20051209
  Transmission Date: 20060501
  Serious: Yes (Other)
  Sender: FDA-Public Use
  Company Number: 2005167748

PATIENT
  Age: 49 Year
  Sex: Male
  Weight: 96.1626 kg

DRUGS (6)
  1. NORVASC [Suspect]
     Indication: ILL-DEFINED DISORDER
     Dosage: 2.5 MG (2.5 MG, 1 IN 1 D), ORAL
     Route: 048
     Dates: start: 19940801
  2. ZANTAC [Concomitant]
  3. SEREVENT [Concomitant]
  4. TAMSULOSIN HCL [Concomitant]
  5. FLOVENT [Concomitant]
  6. PAXIL [Concomitant]

REACTIONS (1)
  - RHEUMATOID ARTHRITIS [None]
